FAERS Safety Report 4882925-6 (Version None)
Quarter: 2006Q1

REPORT INFORMATION
  Report Type: 
  Country: None (occurrence: None)
  Receive Date: 20060113
  Receipt Date: 20060103
  Transmission Date: 20060701
  Serious: Yes (Hospitalization)
  Sender: FDA-Public Use
  Company Number: GB200601000069

PATIENT
  Age: 36 Year
  Sex: Female

DRUGS (2)
  1. ZYPREXA [Suspect]
     Dosage: 2.5 MG, DAILY (1/D),
  2. CITALOPRAM (CITALOPRAM) [Concomitant]

REACTIONS (3)
  - ANAEMIA [None]
  - GENERALISED OEDEMA [None]
  - HYPOTHYROIDISM [None]
